FAERS Safety Report 4873021-2 (Version None)
Quarter: 2006Q1

REPORT INFORMATION
  Report Type: 
  Country: None (occurrence: None)
  Receive Date: 20060105
  Receipt Date: 20051228
  Transmission Date: 20060701
  Serious: Yes (Hospitalization, Disabling)
  Sender: FDA-Public Use
  Company Number: 2005AP06620

PATIENT
  Age: 64 Year
  Sex: Female

DRUGS (8)
  1. DIPRIVAN [Suspect]
     Indication: INDUCTION AND MAINTENANCE OF ANAESTHESIA
     Route: 042
     Dates: start: 20051221, end: 20051221
  2. PENTCILLIN [Suspect]
     Dates: start: 20051221, end: 20051221
  3. XYLOCAINE [Concomitant]
     Indication: INFILTRATION ANAESTHESIA
     Route: 065
     Dates: start: 20051221, end: 20051221
  4. FENTANEST [Concomitant]
     Route: 042
     Dates: start: 20051221, end: 20051221
  5. MUSCULAX [Concomitant]
     Route: 042
     Dates: start: 20051221, end: 20051221
  6. KETALAR [Concomitant]
     Route: 042
     Dates: start: 20051221, end: 20051221
  7. PRIMPERAN INJ [Concomitant]
     Dates: start: 20051221, end: 20051221
  8. ROPION [Concomitant]
     Dates: start: 20051221, end: 20051221

REACTIONS (5)
  - ALANINE AMINOTRANSFERASE INCREASED [None]
  - ASPARTATE AMINOTRANSFERASE INCREASED [None]
  - HEPATIC FUNCTION ABNORMAL [None]
  - PLATELET COUNT DECREASED [None]
  - RENAL IMPAIRMENT [None]
